APPROVED DRUG PRODUCT: RHAPSIDO
Active Ingredient: REMIBRUTINIB
Strength: 25MG
Dosage Form/Route: TABLET;ORAL
Application: N218436 | Product #001
Applicant: NOVARTIS PHARMACEUTICALS CORP
Approved: Sep 30, 2025 | RLD: Yes | RS: Yes | Type: RX

PATENTS:
Patent 10457647 | Expires: Nov 13, 2034
Patent 12419889 | Expires: Jan 20, 2043
Patent 9512084 | Expires: Nov 13, 2034

EXCLUSIVITY:
Code: NCE | Date: Sep 30, 2030